FAERS Safety Report 8536461-6 (Version None)
Quarter: 2012Q3

REPORT INFORMATION
  Report Type: 
  Country: None (occurrence: None)
  Receive Date: 20120725
  Receipt Date: 20120720
  Transmission Date: 20120928
  Serious: Yes (Hospitalization)
  Sender: FDA-Public Use
  Company Number: US-ROCHE-1091371

PATIENT
  Sex: Female
  Weight: 67.192 kg

DRUGS (1)
  1. XELODA [Suspect]
     Indication: SALIVARY GLAND CANCER
     Dosage: 2000 MG IN THE AM AND 1500 MG IN THE PM
     Route: 048
     Dates: start: 20120406

REACTIONS (2)
  - COLD-STIMULUS HEADACHE [None]
  - FATIGUE [None]
